FAERS Safety Report 6753908 (Version 9)
Quarter: 2021Q2

REPORT INFORMATION
  Report Type: Spontaneous
  Country: CA (occurrence: CA)
  Receive Date: 20080911
  Receipt Date: 20210629
  Transmission Date: 20210717
  Serious: Yes (Hospitalization, Other)
  Sender: FDA-Public Use
  Company Number: CA-MERCK-0809CAN00002

PATIENT
  Age: 44 Year
  Sex: Male

DRUGS (17)
  1. ATAZANAVIR SULFATE. [Suspect]
     Active Substance: ATAZANAVIR SULFATE
     Indication: HIV INFECTION
     Dosage: UNK, UNKNOWN
     Route: 065
  2. QUETIAPINE FUMARATE. [Suspect]
     Active Substance: QUETIAPINE FUMARATE
     Indication: DEPRESSION
     Dosage: UNK, UNKNOWN
     Route: 065
     Dates: start: 20070730
  3. ISENTRESS [Interacting]
     Active Substance: RALTEGRAVIR POTASSIUM
     Dosage: 400 MILLIGRAM, 4 EVERY 1 DAYS
     Route: 048
  4. TENOFOVIR [Concomitant]
     Active Substance: TENOFOVIR
     Dosage: UNK
     Route: 065
  5. BUPROPION HYDROCHLORIDE. [Suspect]
     Active Substance: BUPROPION HYDROCHLORIDE
     Indication: DEPRESSION
     Dosage: UNK, UNKNOWN
     Route: 048
     Dates: start: 20070729
  6. EMTRIVA [Concomitant]
     Active Substance: EMTRICITABINE
     Indication: HIV INFECTION
     Route: 065
  7. RISPERIDONE. [Interacting]
     Active Substance: RISPERIDONE
     Indication: DEPRESSION
     Dosage: UNK, UNKNOWN; DOSAGE FORM NOT SPECIFIED
     Route: 065
     Dates: start: 20070729
  8. SUSTIVA [Suspect]
     Active Substance: EFAVIRENZ
     Indication: HIV INFECTION
     Dosage: UNK, UNKNOWN; DOSAGE FORM NOT SPECIFIED
     Route: 065
     Dates: start: 20060602, end: 20070522
  9. CITALOPRAM [Suspect]
     Active Substance: CITALOPRAM HYDROBROMIDE
     Indication: DEPRESSION
  10. RITONAVIR. [Suspect]
     Active Substance: RITONAVIR
     Indication: HIV INFECTION
     Dosage: UNK, UNKNOWN; DOSAGE FORM NOT SPECIFIED
     Route: 065
  11. TENOFOVIR [Concomitant]
     Active Substance: TENOFOVIR
     Indication: HIV INFECTION
     Route: 048
  12. CITALOPRAM [Suspect]
     Active Substance: CITALOPRAM HYDROBROMIDE
     Indication: PSYCHOTIC DISORDER
     Dosage: UNK, UNKNOWN
     Route: 065
  13. CLONAZEPAM. [Suspect]
     Active Substance: CLONAZEPAM
     Indication: DEPRESSION
     Dosage: UNK, UNKNOWN
     Route: 065
     Dates: start: 20070729
  14. CLONAZEPAM. [Suspect]
     Active Substance: CLONAZEPAM
     Indication: PRODUCT USED FOR UNKNOWN INDICATION
     Dosage: UNK, UNKNOWN
     Route: 065
     Dates: start: 20070730
  15. QUETIAPINE FUMARATE. [Suspect]
     Active Substance: QUETIAPINE FUMARATE
     Dosage: UNK
     Route: 048
  16. ISENTRESS [Suspect]
     Active Substance: RALTEGRAVIR POTASSIUM
     Indication: HIV INFECTION
     Dosage: 400 MG, 2 EVERY 1 DAY
     Route: 048
     Dates: start: 20070626
  17. ENFUVIRTIDE. [Concomitant]
     Active Substance: ENFUVIRTIDE
     Indication: HIV INFECTION
     Dosage: UNK; DOSAGE FORM NOT SPECIFIED
     Route: 065
     Dates: end: 20070626

REACTIONS (11)
  - Depressive symptom [Recovered/Resolved]
  - Anxiety [Recovered/Resolved]
  - Psychiatric decompensation [Recovered/Resolved]
  - Psychotic disorder [Recovered/Resolved]
  - Suicidal ideation [Recovered/Resolved]
  - Depression [Recovered/Resolved]
  - Drug interaction [Recovered/Resolved]
  - Paranoia [Recovered/Resolved]
  - Tearfulness [Recovered/Resolved]
  - Psychomotor skills impaired [Recovered/Resolved]
  - Depression suicidal [Recovered/Resolved]

NARRATIVE: CASE EVENT DATE: 20060602
